FAERS Safety Report 5484068-X (Version None)
Quarter: 2007Q4

REPORT INFORMATION
  Report Type: 
  Country: None (occurrence: None)
  Receive Date: 20071012
  Receipt Date: 20071009
  Transmission Date: 20080405
  Serious: Yes (Death, Hospitalization)
  Sender: FDA-Public Use
  Company Number: MX-BRISTOL-MYERS SQUIBB COMPANY-13918669

PATIENT
  Age: 70 Year
  Sex: Male
  Weight: 49 kg

DRUGS (5)
  1. ABATACEPT [Suspect]
     Route: 042
     Dates: start: 20061113, end: 20070828
  2. METHOTREXATE TABS [Suspect]
     Route: 048
  3. BLINDED: PLACEBO [Suspect]
  4. CIPROXIN [Concomitant]
     Dates: start: 20070921, end: 20071002
  5. OMEPRAZOLE [Concomitant]
     Dates: start: 20071002, end: 20071002

REACTIONS (3)
  - GASTROINTESTINAL HAEMORRHAGE [None]
  - HYPOVOLAEMIC SHOCK [None]
  - PNEUMONIA [None]
